FAERS Safety Report 22244247 (Version 1)
Quarter: 2023Q2

REPORT INFORMATION
  Report Type: Spontaneous
  Country: PT (occurrence: PT)
  Receive Date: 20230424
  Receipt Date: 20230424
  Transmission Date: 20230722
  Serious: Yes (Other)
  Sender: FDA-Public Use
  Company Number: PT-INFARMED-T202304-144

PATIENT
  Age: 21 Year
  Sex: Female
  Weight: 52 kg

DRUGS (7)
  1. NAPROXEN [Suspect]
     Active Substance: NAPROXEN
     Indication: Wheezing
     Dosage: 250 MILLIGRAM
     Route: 065
     Dates: start: 20230405, end: 20230405
  2. NAPROXEN [Suspect]
     Active Substance: NAPROXEN
     Indication: Respiratory tract infection
  3. CLARITHROMYCIN [Concomitant]
     Active Substance: CLARITHROMYCIN
     Indication: Respiratory tract infection
     Dosage: 500 MILLIGRAM, ONCE A DAY
     Route: 048
  4. MAIZAR [Concomitant]
     Indication: Wheezing
     Dosage: UNK
  5. PREGABALINA TECNIGEN [Concomitant]
     Indication: Product used for unknown indication
     Dosage: UNK
     Route: 048
  6. VENLAFAXINA GENERIS [Concomitant]
     Indication: Product used for unknown indication
     Dosage: UNK
     Route: 048
  7. XANAX [Concomitant]
     Active Substance: ALPRAZOLAM
     Indication: Product used for unknown indication
     Dosage: UNK
     Route: 048

REACTIONS (3)
  - Angioedema [Recovered/Resolved]
  - Eye irritation [Recovered/Resolved]
  - Eye pruritus [Recovered/Resolved]

NARRATIVE: CASE EVENT DATE: 20230405
